FAERS Safety Report 18278046 (Version 1)
Quarter: 2020Q3

REPORT INFORMATION
  Report Type: Spontaneous
  Country: US (occurrence: US)
  Receive Date: 20200909
  Receipt Date: 20200909
  Transmission Date: 20201103
  Serious: Yes (Death)
  Sender: FDA-Public Use
  Company Number: None

PATIENT
  Age: 4 Decade
  Sex: Female

DRUGS (4)
  1. OSELTAMIVIR [Suspect]
     Active Substance: OSELTAMIVIR
  2. IMMUNOGLOBULINS, INTRAVENOUS [Suspect]
     Active Substance: HUMAN IMMUNOGLOBULIN G
     Route: 042
  3. HYDROXYCHLOROQUINE [Suspect]
     Active Substance: HYDROXYCHLOROQUINE
     Indication: COVID-19
  4. LOPINAVIR?RITONAVIR [Suspect]
     Active Substance: LOPINAVIR\RITONAVIR

REACTIONS (8)
  - Septic shock [None]
  - Coagulopathy [None]
  - Product use in unapproved indication [None]
  - Cardiac failure [None]
  - Product use issue [None]
  - Maternal exposure during pregnancy [None]
  - Suspected COVID-19 [None]
  - Foetal exposure during pregnancy [None]
